FAERS Safety Report 8090463-5 (Version None)
Quarter: 2012Q1

REPORT INFORMATION
  Report Type: 
  Country: None (occurrence: None)
  Receive Date: 20120129
  Receipt Date: 20111121
  Transmission Date: 20120608
  Serious: No
  Sender: FDA-Public Use
  Company Number: US-ABBOTT-11P-163-0876025-00

PATIENT
  Sex: Male

DRUGS (3)
  1. PREDNISONE TAB [Concomitant]
     Indication: PRODUCT USED FOR UNKNOWN INDICATION
     Dosage: QD
     Dates: start: 19970301
  2. PENTASA [Concomitant]
     Indication: PRODUCT USED FOR UNKNOWN INDICATION
     Dosage: QD
     Dates: start: 19970301
  3. HUMIRA [Suspect]
     Indication: CROHN'S DISEASE
     Dosage: 80MG 2ND LOADING DOSE
     Dates: start: 20111027

REACTIONS (4)
  - LACERATION [None]
  - RASH [None]
  - OCULAR HYPERAEMIA [None]
  - SKIN ATROPHY [None]
